FAERS Safety Report 5829225-5 (Version None)
Quarter: 2008Q3

REPORT INFORMATION
  Report Type: 
  Country: None (occurrence: None)
  Receive Date: 20080731
  Receipt Date: 20080715
  Transmission Date: 20090109
  Serious: Yes (Other)
  Sender: FDA-Public Use
  Company Number: PHEH2008US02975

PATIENT
  Age: 54 Year
  Sex: Female
  Weight: 49.887 kg

DRUGS (1)
  1. RITALIN LA [Suspect]
     Indication: ATTENTION DEFICIT/HYPERACTIVITY DISORDER
     Dosage: 20 MG, 2 CAPSULES IN AM AND 1 CAPSULE IN PM
     Route: 048
     Dates: start: 20080314, end: 20080317

REACTIONS (6)
  - ADVERSE EVENT [None]
  - DRUG INEFFECTIVE [None]
  - DYSARTHRIA [None]
  - FEELING ABNORMAL [None]
  - MEMORY IMPAIRMENT [None]
  - MENTAL IMPAIRMENT [None]
